FAERS Safety Report 7247104-6 (Version None)
Quarter: 2011Q1

REPORT INFORMATION
  Report Type: 
  Country: None (occurrence: None)
  Receive Date: 20110127
  Receipt Date: 20100512
  Transmission Date: 20110831
  Serious: No
  Sender: FDA-Public Use
  Company Number: US-BAUSCH-2010BL002530

PATIENT
  Age: 32 Year
  Sex: Female

DRUGS (3)
  1. ALAWAY [Suspect]
     Indication: EYE ALLERGY
     Route: 047
     Dates: start: 20100505, end: 20100505
  2. ASCORBIC ACID [Concomitant]
  3. ALAWAY [Suspect]
     Route: 047
     Dates: start: 20100506, end: 20100509

REACTIONS (1)
  - EPISTAXIS [None]
